FAERS Safety Report 7229964-8 (Version None)
Quarter: 2011Q1

REPORT INFORMATION
  Report Type: 
  Country: None (occurrence: None)
  Receive Date: 20110117
  Receipt Date: 20110114
  Transmission Date: 20110831
  Serious: Yes (Life-Threatening, Other)
  Sender: FDA-Public Use
  Company Number: US-AMGEN-USASP2011000458

PATIENT

DRUGS (4)
  1. IRON [Concomitant]
  2. NPLATE [Suspect]
     Indication: IDIOPATHIC THROMBOCYTOPENIC PURPURA
     Dosage: 2 A?G/KG, QWK
     Route: 058
     Dates: start: 20101214, end: 20110104
  3. PREDNISONE [Concomitant]
     Dosage: UNK
     Dates: start: 20101202, end: 20101227
  4. NPLATE [Suspect]
     Dates: start: 20101214, end: 20110104

REACTIONS (2)
  - PLATELET COUNT DECREASED [None]
  - THERAPEUTIC RESPONSE DECREASED [None]
